FAERS Safety Report 26143671 (Version 1)
Quarter: 2025Q4

REPORT INFORMATION
  Report Type: Spontaneous
  Country: EU (occurrence: EU)
  Receive Date: 20251211
  Receipt Date: 20251211
  Transmission Date: 20260118
  Serious: Yes (Other)
  Sender: AUROBINDO
  Company Number: EU-ELI_LILLY_AND_COMPANY-ES202503018355

PATIENT
  Sex: Female

DRUGS (4)
  1. LETROZOLE [Suspect]
     Active Substance: LETROZOLE
     Indication: Product used for unknown indication
     Dosage: UNK, UNKNOWN
     Route: 065
  2. ABEMACICLIB [Suspect]
     Active Substance: ABEMACICLIB
     Indication: Product used for unknown indication
     Dosage: 100 MG, UNKNOWN
  3. ABEMACICLIB [Suspect]
     Active Substance: ABEMACICLIB
     Dosage: 100 MG, UNKNOWN
  4. ABEMACICLIB [Suspect]
     Active Substance: ABEMACICLIB
     Dosage: 150 MG, UNKNOWN

REACTIONS (16)
  - Thrombosis [Recovering/Resolving]
  - Alopecia [Recovering/Resolving]
  - Asthenia [Recovering/Resolving]
  - Feeling abnormal [Recovering/Resolving]
  - Gingival pain [Recovering/Resolving]
  - Infection [Recovering/Resolving]
  - Madarosis [Recovering/Resolving]
  - Memory impairment [Recovering/Resolving]
  - Toothache [Recovering/Resolving]
  - Gastritis [Recovered/Resolved]
  - Herpes virus infection [Recovered/Resolved]
  - Neuralgia [Recovering/Resolving]
  - Hair texture abnormal [Recovering/Resolving]
  - Varicose vein [Recovering/Resolving]
  - Fatigue [Recovering/Resolving]
  - Radiation skin injury [Recovering/Resolving]

NARRATIVE: CASE EVENT DATE: 20240101
